FAERS Safety Report 4290719-8 (Version None)
Quarter: 2004Q1

REPORT INFORMATION
  Report Type: 
  Country: None (occurrence: None)
  Receive Date: 20040209
  Receipt Date: 20040127
  Transmission Date: 20041129
  Serious: Yes (Hospitalization, Other)
  Sender: FDA-Public Use
  Company Number: 2004005938

PATIENT
  Age: 57 Year
  Sex: Male

DRUGS (2)
  1. VIBRAMYCIN [Suspect]
     Indication: SINUSITIS
     Dosage: 200 MG (BID), ORAL
     Route: 048
     Dates: start: 20040112, end: 20040112
  2. AMOXICILLIN [Concomitant]

REACTIONS (1)
  - CIRCULATORY COLLAPSE [None]
